FAERS Safety Report 8133997-7 (Version None)
Quarter: 2012Q1

REPORT INFORMATION
  Report Type: 
  Country: None (occurrence: None)
  Receive Date: 20120213
  Receipt Date: 20120202
  Transmission Date: 20120608
  Serious: Yes (Other)
  Sender: FDA-Public Use
  Company Number: IT-BRISTOL-MYERS SQUIBB COMPANY-16354920

PATIENT
  Age: 75 Year
  Sex: Female

DRUGS (2)
  1. ENTECAVIR TABS [Suspect]
     Dates: start: 20080409, end: 20111230
  2. SPIRONOLACTONE [Concomitant]
     Dosage: 1DF:1TAB

REACTIONS (1)
  - RENAL FAILURE CHRONIC [None]
